FAERS Safety Report 4772828-X (Version None)
Quarter: 2005Q3

REPORT INFORMATION
  Report Type: 
  Country: None (occurrence: None)
  Receive Date: 20050916
  Receipt Date: 20050907
  Transmission Date: 20060218
  Serious: Yes (Other)
  Sender: FDA-Public Use
  Company Number: 2005125354

PATIENT
  Age: 69 Year
  Sex: Female

DRUGS (9)
  1. NORVASC [Suspect]
     Indication: ILL-DEFINED DISORDER
     Dosage: 5 MG (5 MG, QD), ORAL
     Route: 048
  2. PREDNISONE [Concomitant]
  3. ONE-ALPHA (ALFACALCIDOL) [Concomitant]
  4. DIGOXIN [Concomitant]
  5. ALDACTONE [Concomitant]
  6. MAGNESIUM OXIDE (MAGNESIUM OXIDE) [Concomitant]
  7. PURSENNID (SENNA LEAF) [Concomitant]
  8. LAXOBERON (SODIUM PICOSULFATE) [Concomitant]
  9. TAGAMET [Concomitant]

REACTIONS (1)
  - BLOOD TRIGLYCERIDES INCREASED [None]
